FAERS Safety Report 11767282 (Version 1)
Quarter: 2015Q4

REPORT INFORMATION
  Report Type: Spontaneous
  Country: US (occurrence: None)
  Receive Date: 20151120
  Receipt Date: 20151120
  Transmission Date: 20160304
  Serious: Yes (Hospitalization)
  Sender: FDA-Public Use
  Company Number: None

PATIENT
  Age: 76 Year
  Sex: Male
  Weight: 115 kg

DRUGS (2)
  1. METOPROLOL [Suspect]
     Active Substance: METOPROLOL
     Indication: HYPERTENSION
     Route: 048
     Dates: start: 20060308, end: 20151015
  2. LABETALOL [Suspect]
     Active Substance: LABETALOL\LABETALOL HYDROCHLORIDE
     Indication: HYPERTENSION
     Route: 048
     Dates: start: 20151001, end: 20151013

REACTIONS (7)
  - Dyspnoea exertional [None]
  - Lung disorder [None]
  - Dyspnoea [None]
  - Pleural effusion [None]
  - Fluid overload [None]
  - Nephrotic syndrome [None]
  - Cardiac failure [None]

NARRATIVE: CASE EVENT DATE: 20151015
